FAERS Safety Report 7822295-4 (Version None)
Quarter: 2011Q4

REPORT INFORMATION
  Report Type: 
  Country: None (occurrence: None)
  Receive Date: 20111018
  Receipt Date: 20110304
  Transmission Date: 20120403
  Serious: No
  Sender: FDA-Public Use
  Company Number: US-ASTRAZENECA-2011SE01860

PATIENT
  Age: 75 Year
  Sex: Male

DRUGS (2)
  1. SYMBICORT [Suspect]
     Dosage: 160/4.5, TWO PUFFS, BID INTERMITTENTLY
     Route: 055
     Dates: start: 20090101
  2. SYMBICORT [Suspect]
     Dosage: 160/4.5, TWO PUFFS, BID
     Route: 055
     Dates: start: 20090101

REACTIONS (3)
  - COUGH [None]
  - WRONG TECHNIQUE IN DRUG USAGE PROCESS [None]
  - INAPPROPRIATE SCHEDULE OF DRUG ADMINISTRATION [None]
